FAERS Safety Report 4924723-0 (Version None)
Quarter: 2006Q1

REPORT INFORMATION
  Report Type: 
  Country: None (occurrence: None)
  Receive Date: 20060222
  Receipt Date: 20060214
  Transmission Date: 20060701
  Serious: Yes (Life-Threatening, Hospitalization)
  Sender: FDA-Public Use
  Company Number: OSCN-PR-0602S-0037

PATIENT
  Age: 46 Year
  Sex: Female

DRUGS (5)
  1. OMNISCAN [Suspect]
     Indication: HEADACHE
     Dosage: SEE IMAGE
     Route: 024
     Dates: start: 20060118, end: 20060118
  2. OMNISCAN [Suspect]
     Indication: NECK PAIN
     Dosage: SEE IMAGE
     Route: 024
     Dates: start: 20060118, end: 20060118
  3. OMNISCAN [Suspect]
     Indication: HEADACHE
     Dosage: SEE IMAGE
     Route: 024
     Dates: start: 20060118, end: 20060118
  4. OMNISCAN [Suspect]
     Indication: NECK PAIN
     Dosage: SEE IMAGE
     Route: 024
     Dates: start: 20060118, end: 20060118
  5. CEFAZOLIN SODIUM                (KEFZOL) [Concomitant]

REACTIONS (7)
  - CSF TEST ABNORMAL [None]
  - DISORIENTATION [None]
  - GRAND MAL CONVULSION [None]
  - HALLUCINATION [None]
  - INTRACRANIAL HYPOTENSION [None]
  - MYOCARDIAL INFARCTION [None]
  - VOMITING [None]
